FAERS Safety Report 24410410 (Version 4)
Quarter: 2025Q4

REPORT INFORMATION
  Report Type: Spontaneous
  Country: US (occurrence: US)
  Receive Date: 20241008
  Receipt Date: 20251218
  Transmission Date: 20260118
  Serious: Yes (Life-Threatening, Hospitalization, Other)
  Sender: CIPLA
  Company Number: US-CIPLA LTD.-2024US11112

PATIENT

DRUGS (3)
  1. METOPROLOL [Suspect]
     Active Substance: METOPROLOL
     Indication: Product used for unknown indication
     Dosage: UNK (TAKEN IN EVENING)
     Route: 065
  2. LISINOPRIL [Suspect]
     Active Substance: LISINOPRIL
     Indication: Product used for unknown indication
     Dosage: UNK
     Route: 065
  3. VERAPAMIL [Suspect]
     Active Substance: VERAPAMIL HYDROCHLORIDE
     Indication: Product used for unknown indication
     Dosage: UNK
     Route: 065

REACTIONS (5)
  - BRASH syndrome [Recovering/Resolving]
  - Encephalopathy [Unknown]
  - Lactic acidosis [Unknown]
  - Atrial fibrillation [Recovering/Resolving]
  - Cardiac failure acute [Recovered/Resolved]
